FAERS Safety Report 10719153 (Version 2)
Quarter: 2015Q1

REPORT INFORMATION
  Report Type: Spontaneous
  Country: US (occurrence: US)
  Receive Date: 20150119
  Receipt Date: 20150119
  Transmission Date: 20150721
  Serious: No
  Sender: FDA-Public Use
  Company Number: US-UNITED THERAPEUTICS-UNT-2014-003561

PATIENT
  Sex: Female
  Weight: 54.88 kg

DRUGS (3)
  1. REMODULIN [Suspect]
     Active Substance: TREPROSTINIL
     Indication: COR PULMONALE CHRONIC
     Dosage: 0.06125 ?G/KG/MIN, CONTINUING
     Route: 058
     Dates: start: 20121106
  2. OPSUMIT [Concomitant]
     Active Substance: MACITENTAN
     Indication: PRODUCT USED FOR UNKNOWN INDICATION
  3. WARFARIN [Concomitant]
     Active Substance: WARFARIN
     Indication: PRODUCT USED FOR UNKNOWN INDICATION

REACTIONS (6)
  - Infusion site rash [Unknown]
  - Infusion site erythema [Unknown]
  - Infusion site pustule [Unknown]
  - Drug dose omission [Unknown]
  - Infusion site infection [Unknown]
  - Injection site discharge [Unknown]
